FAERS Safety Report 9395643 (Version 1)
Quarter: 2013Q3

REPORT INFORMATION
  Report Type: Spontaneous
  Country: US (occurrence: US)
  Receive Date: 20130711
  Receipt Date: 20130711
  Transmission Date: 20140515
  Serious: Yes (Other)
  Sender: FDA-Public Use
  Company Number: US-009507513-1306USA014831

PATIENT
  Age: 56 Year
  Sex: Female

DRUGS (6)
  1. JANUVIA [Suspect]
     Indication: DIABETES MELLITUS
     Dosage: UNK
     Route: 048
     Dates: start: 2009, end: 201204
  2. JANUVIA [Suspect]
     Dosage: UNK
     Route: 048
     Dates: end: 201305
  3. FOSAMAX [Concomitant]
  4. LIPITOR [Concomitant]
  5. MILK THISTLE [Concomitant]
  6. VITAMIN E [Concomitant]

REACTIONS (3)
  - Transaminases increased [Not Recovered/Not Resolved]
  - Drug-induced liver injury [Unknown]
  - Hepatic enzyme abnormal [Recovered/Resolved]
